FAERS Safety Report 10087559 (Version 1)
Quarter: 2014Q2

REPORT INFORMATION
  Report Type: Spontaneous
  Country: US (occurrence: US)
  Receive Date: 20140418
  Receipt Date: 20140418
  Transmission Date: 20141212
  Serious: No
  Sender: FDA-Public Use
  Company Number: US-PURDUE-USA-2013-0108659

PATIENT
  Sex: Female

DRUGS (3)
  1. OXYCONTIN (NDA 22-272) [Suspect]
     Indication: BACK PAIN
     Dosage: 0 MG, DAILY
     Route: 048
  2. OXYCONTIN (NDA 22-272) [Suspect]
     Indication: PAIN IN EXTREMITY
  3. PERCOCET                           /00446701/ [Concomitant]
     Indication: PRODUCT USED FOR UNKNOWN INDICATION
     Route: 048

REACTIONS (4)
  - Flushing [Unknown]
  - Somnolence [Unknown]
  - Headache [Unknown]
  - Inadequate analgesia [Unknown]
